FAERS Safety Report 15453456 (Version 2)
Quarter: 2019Q1

REPORT INFORMATION
  Report Type: Spontaneous
  Country: US (occurrence: US)
  Receive Date: 20181001
  Receipt Date: 20190301
  Transmission Date: 20190417
  Serious: No
  Sender: FDA-Public Use
  Company Number: US-PFIZER INC-2018389960

PATIENT
  Age: 79 Year
  Sex: Female

DRUGS (5)
  1. LYRICA [Suspect]
     Active Substance: PREGABALIN
     Indication: DIABETIC NEUROPATHY
     Dosage: 150 MG, DAILY (75MGX 2 DAILY)
     Dates: start: 1998
  2. LYRICA [Suspect]
     Active Substance: PREGABALIN
     Indication: BACK DISORDER
  3. NORTRIPTYLINE [Suspect]
     Active Substance: NORTRIPTYLINE
     Dosage: 50 MG, 1X/DAY (50MG NIGHTLY)
     Dates: start: 1998
  4. ZOLOFT [Suspect]
     Active Substance: SERTRALINE HYDROCHLORIDE
     Indication: DEPRESSION
     Dosage: 100 MG, 1X/DAY (EACH MORNING)
     Dates: start: 1999
  5. LYRICA [Suspect]
     Active Substance: PREGABALIN
     Indication: NERVE INJURY

REACTIONS (4)
  - Pain in extremity [Unknown]
  - Insomnia [Unknown]
  - Hypoacusis [Unknown]
  - Anal incontinence [Unknown]
